FAERS Safety Report 6057487-0 (Version None)
Quarter: 2009Q1

REPORT INFORMATION
  Report Type: 
  Country: None (occurrence: None)
  Receive Date: 20090126
  Receipt Date: 20090113
  Transmission Date: 20090719
  Serious: Yes (Death, Hospitalization)
  Sender: FDA-Public Use
  Company Number: 2008AL010974

PATIENT
  Age: 45 Year
  Sex: Male
  Weight: 90.2658 kg

DRUGS (13)
  1. DIGOXIN [Suspect]
     Indication: CARDIAC DISORDER
     Dosage: 0.25MG, DAILY, PO
     Route: 048
  2. COREG [Concomitant]
  3. ALTACE [Concomitant]
  4. ASPIRIN [Concomitant]
  5. VITAMINS [Concomitant]
  6. LOPRESSOR [Concomitant]
  7. LASIX [Concomitant]
  8. AMIODARONE [Concomitant]
  9. INSULIN [Concomitant]
  10. CEFEPIME [Concomitant]
  11. DILANTIN [Concomitant]
  12. FAMOTIDINE [Concomitant]
  13. LEVAQUIN [Concomitant]

REACTIONS (22)
  - ANGINA PECTORIS [None]
  - ANOXIC ENCEPHALOPATHY [None]
  - CARDIAC ARREST [None]
  - CARDIAC STRESS TEST ABNORMAL [None]
  - CARDIOMYOPATHY [None]
  - CHEST DISCOMFORT [None]
  - DILATATION VENTRICULAR [None]
  - DRUG TOXICITY [None]
  - DYSPNOEA EXERTIONAL [None]
  - ELECTROCARDIOGRAM T WAVE INVERSION [None]
  - FATIGUE [None]
  - HYPOKINESIA [None]
  - LEFT VENTRICULAR DYSFUNCTION [None]
  - MITRAL VALVE INCOMPETENCE [None]
  - MULTIPLE INJURIES [None]
  - PALPITATIONS [None]
  - RENAL FAILURE [None]
  - RESPIRATORY FAILURE [None]
  - SINUS TACHYCARDIA [None]
  - SUPRAVENTRICULAR TACHYARRHYTHMIA [None]
  - TRICUSPID VALVE INCOMPETENCE [None]
  - VENTRICULAR ARRHYTHMIA [None]
